FAERS Safety Report 8001418-0 (Version None)
Quarter: 2011Q4

REPORT INFORMATION
  Report Type: 
  Country: None (occurrence: None)
  Receive Date: 20111222
  Receipt Date: 20111213
  Transmission Date: 20120403
  Serious: Yes (Death, Life-Threatening, Hospitalization)
  Sender: FDA-Public Use
  Company Number: FR-MILLENNIUM PHARMACEUTICALS, INC.-2011-06372

PATIENT

DRUGS (3)
  1. LENALIDOMIDE [Concomitant]
     Indication: MULTIPLE MYELOMA
     Dosage: 15 MG, UNK
     Route: 065
  2. VELCADE [Suspect]
     Indication: MULTIPLE MYELOMA
     Dosage: UNK
     Route: 042
     Dates: start: 20110214, end: 20110812
  3. DEXAMETHASONE [Concomitant]
     Indication: MULTIPLE MYELOMA
     Dosage: 40 MG, UNK
     Route: 065

REACTIONS (2)
  - SEPTIC SHOCK [None]
  - STATUS EPILEPTICUS [None]
